FAERS Safety Report 4947976-1 (Version None)
Quarter: 2006Q1

REPORT INFORMATION
  Report Type: 
  Country: None (occurrence: None)
  Receive Date: 20060320
  Receipt Date: 20051004
  Transmission Date: 20060701
  Serious: Yes (Hospitalization)
  Sender: FDA-Public Use
  Company Number: US-MERCK-0510USA03571

PATIENT
  Age: 75 Year
  Sex: Female

DRUGS (2)
  1. VIOXX [Suspect]
     Indication: SPONDYLOLISTHESIS
     Route: 048
     Dates: start: 20020901
  2. VIOXX [Suspect]
     Indication: SPINAL COLUMN STENOSIS
     Route: 048
     Dates: start: 20020901

REACTIONS (16)
  - ACUTE MYOCARDIAL INFARCTION [None]
  - AGITATION [None]
  - ATRIAL FIBRILLATION [None]
  - CARDIAC FAILURE CONGESTIVE [None]
  - CARDIOVASCULAR DISORDER [None]
  - CARPAL TUNNEL SYNDROME [None]
  - CORONARY ARTERY DISEASE [None]
  - DELIRIUM [None]
  - DIALYSIS [None]
  - DRESSLER'S SYNDROME [None]
  - PARANOIA [None]
  - PERICARDITIS [None]
  - PLEURAL EFFUSION [None]
  - RENAL FAILURE ACUTE [None]
  - THROMBOSIS [None]
  - VASCULAR DEMENTIA [None]
